FAERS Safety Report 9718809 (Version 1)
Quarter: 2013Q4

REPORT INFORMATION
  Report Type: Spontaneous
  Country: US (occurrence: US)
  Receive Date: 20131127
  Receipt Date: 20131127
  Transmission Date: 20140711
  Serious: No
  Sender: FDA-Public Use
  Company Number: US-PFIZER INC-2013339452

PATIENT
  Age: 22 Year
  Sex: Female
  Weight: 56.7 kg

DRUGS (2)
  1. GEODON [Suspect]
     Indication: BIPOLAR DISORDER
     Dosage: 40MG IN MORNING AND 160MG IN EVENING (FOUR DOSE OF 40MG)
     Route: 048
  2. LAMICTAL [Concomitant]
     Dosage: UNK

REACTIONS (1)
  - Somnolence [Unknown]
